FAERS Safety Report 25923848 (Version 2)
Quarter: 2025Q4

REPORT INFORMATION
  Report Type: Spontaneous
  Country: GB (occurrence: GB)
  Receive Date: 20251015
  Receipt Date: 20251031
  Transmission Date: 20260118
  Serious: Yes (Congenital Anomaly, Other)
  Sender: RANBAXY
  Company Number: GB-MHRA-MED-202509301302409530-QCGRY

PATIENT
  Age: 5 Year
  Sex: Male

DRUGS (3)
  1. SERTRALINE [Suspect]
     Active Substance: SERTRALINE HYDROCHLORIDE
     Indication: Product used for unknown indication
     Dosage: UNK
     Route: 065
  2. UNSPECIFIED INGREDIENT [Concomitant]
     Active Substance: UNSPECIFIED INGREDIENT
     Indication: Product used for unknown indication
     Dosage: UNK
     Route: 064
  3. METFORMIN [Concomitant]
     Active Substance: METFORMIN HYDROCHLORIDE
     Indication: Product used for unknown indication
     Dosage: UNK
     Route: 064

REACTIONS (7)
  - Autism spectrum disorder [Not Recovered/Not Resolved]
  - Polyhydramnios [Unknown]
  - Motor developmental delay [Unknown]
  - Speech disorder developmental [Unknown]
  - Developmental delay [Unknown]
  - Foetal exposure during pregnancy [Unknown]
  - Breech presentation [Unknown]
